FAERS Safety Report 5154420-0 (Version None)
Quarter: 2006Q4

REPORT INFORMATION
  Report Type: 
  Country: None (occurrence: None)
  Receive Date: 20061114
  Receipt Date: 20061101
  Transmission Date: 20070319
  Serious: Yes (Other)
  Sender: FDA-Public Use
  Company Number: 2006133725

PATIENT
  Age: 37 Year
  Sex: Female

DRUGS (3)
  1. NIFEDIPINE [Suspect]
     Indication: TOCOLYSIS
     Dosage: 2 DOSES IN 1 HOUR (20 MG), SUBLINGUAL; SEE IMAGE
     Route: 060
  2. BETAMETHASONE [Suspect]
     Dosage: 12 MG (12 MG, QD), INTRAMUSCULAR
     Route: 030
  3. CLARITHROMYCIN [Concomitant]

REACTIONS (10)
  - CAESAREAN SECTION [None]
  - CHEST X-RAY ABNORMAL [None]
  - DRUG EXPOSURE DURING PREGNANCY [None]
  - FLUID RETENTION [None]
  - PREMATURE LABOUR [None]
  - PROCEDURAL COMPLICATION [None]
  - PULMONARY OEDEMA [None]
  - RESPIRATORY ALKALOSIS [None]
  - SODIUM RETENTION [None]
  - TACHYCARDIA [None]
